FAERS Safety Report 12630552 (Version 1)
Quarter: 2016Q3

REPORT INFORMATION
  Report Type: Spontaneous
  Country: US (occurrence: US)
  Receive Date: 20160808
  Receipt Date: 20160808
  Transmission Date: 20161109
  Serious: Yes (Disabling, Other)
  Sender: FDA-Public Use
  Company Number: US-REGENERON PHARMACEUTICALS, INC.-2016-18256

PATIENT

DRUGS (1)
  1. EYLEA [Suspect]
     Active Substance: AFLIBERCEPT
     Indication: PRODUCT USED FOR UNKNOWN INDICATION
     Dosage: 2 MG MILLIGRAM(S), 6 WEEKS TO 3 MONTHS
     Route: 031
     Dates: start: 20150526, end: 20160609

REACTIONS (8)
  - Cataract subcapsular [Not Recovered/Not Resolved]
  - Eye inflammation [Unknown]
  - Blindness unilateral [Unknown]
  - Intraocular pressure increased [Unknown]
  - Lens disorder [Not Recovered/Not Resolved]
  - Eye pain [Unknown]
  - Ocular discomfort [Not Recovered/Not Resolved]
  - Vitreous floaters [Unknown]

NARRATIVE: CASE EVENT DATE: 20160609
